FAERS Safety Report 20015390 (Version 1)
Quarter: 2021Q4

REPORT INFORMATION
  Report Type: Spontaneous
  Country: US (occurrence: None)
  Receive Date: 20211029
  Receipt Date: 20211029
  Transmission Date: 20220304
  Serious: No
  Sender: FDA-Public Use
  Company Number: None

PATIENT
  Age: 33 Year
  Sex: Female
  Weight: 51.75 kg

DRUGS (1)
  1. DEXTROAMPHET SACCHARAT, AMPHET ASPARTATE, DEXTROAMPHET SULFATE AND AMP [Suspect]
     Active Substance: AMPHETAMINE ASPARTATE\AMPHETAMINE SULFATE\DEXTROAMPHETAMINE SACCHARATE\DEXTROAMPHETAMINE SULFATE
     Indication: Attention deficit hyperactivity disorder
     Dosage: OTHER QUANTITY : 1 TABLET(S);?FREQUENCY : TWICE A DAY;?
     Route: 048

REACTIONS (10)
  - Disturbance in attention [None]
  - Feeling abnormal [None]
  - Decreased appetite [None]
  - Fatigue [None]
  - Nausea [None]
  - Social avoidant behaviour [None]
  - Impulsive behaviour [None]
  - Drug ineffective [None]
  - Therapy change [None]
  - Hypomenorrhoea [None]

NARRATIVE: CASE EVENT DATE: 20210902
